FAERS Safety Report 5604410-6 (Version None)
Quarter: 2008Q1

REPORT INFORMATION
  Report Type: 
  Country: None (occurrence: None)
  Receive Date: 20080123
  Receipt Date: 20080123
  Transmission Date: 20080703
  Serious: Yes (Other)
  Sender: FDA-Public Use
  Company Number: None

PATIENT
  Age: 65 Year
  Sex: Female
  Weight: 124.7392 kg

DRUGS (2)
  1. TRIAMTERENE   75/50 MG  WATSON [Suspect]
     Indication: HYPERTENSION
     Dosage: 1/2 TABLET FOR LEG SWELLING PO
     Route: 048
     Dates: start: 20080107, end: 20080115
  2. TRIAMTERENE   75/50 MG  WATSON [Suspect]
     Indication: OEDEMA PERIPHERAL
     Dosage: 1/2 TABLET FOR LEG SWELLING PO
     Route: 048
     Dates: start: 20080107, end: 20080115

REACTIONS (1)
  - MUSCLE SPASMS [None]
